FAERS Safety Report 5130853-3 (Version None)
Quarter: 2006Q4

REPORT INFORMATION
  Report Type: 
  Country: None (occurrence: None)
  Receive Date: 20061013
  Receipt Date: 20061009
  Transmission Date: 20070319
  Serious: Yes (Death)
  Sender: FDA-Public Use
  Company Number: 163-20785-06080888

PATIENT
  Age: 62 Year
  Sex: Male

DRUGS (7)
  1. THALOMID [Suspect]
     Indication: MALIGNANT MELANOMA
     Dosage: 200 MG, 1 IN 1 D, ORAL
     Route: 048
     Dates: start: 20060313, end: 20060807
  2. TEMODAR (TEMOZOLAMIDE) [Concomitant]
  3. DIOVAN [Concomitant]
  4. METFORMIN HCL [Concomitant]
  5. PAROXETINE HCL [Concomitant]
  6. CLARINEX [Concomitant]
  7. ACIPHEX [Concomitant]

REACTIONS (5)
  - FATIGUE [None]
  - LOSS OF CONSCIOUSNESS [None]
  - MYOCARDIAL INFARCTION [None]
  - PULMONARY EMBOLISM [None]
  - SUDDEN DEATH [None]
